FAERS Safety Report 23077568 (Version 3)
Quarter: 2023Q4

REPORT INFORMATION
  Report Type: Spontaneous
  Country: JP (occurrence: JP)
  Receive Date: 20231018
  Receipt Date: 20231116
  Transmission Date: 20240110
  Serious: Yes (Other)
  Sender: FDA-Public Use
  Company Number: JP-MSD-M2023-43203

PATIENT
  Age: 64 Year
  Sex: Female

DRUGS (3)
  1. KEYTRUDA [Suspect]
     Active Substance: PEMBROLIZUMAB
     Indication: Squamous cell carcinoma of the cervix
     Dosage: 200 MILLIGRAM, Q3W
     Route: 041
     Dates: start: 20230515
  2. PACLITAXEL [Concomitant]
     Active Substance: PACLITAXEL
     Indication: Squamous cell carcinoma of the cervix
     Dosage: 175 MILLIGRAM/SQ. METER, Q3W
     Route: 041
     Dates: start: 20230515, end: 202310
  3. CARBOPLATIN [Concomitant]
     Active Substance: CARBOPLATIN
     Indication: Squamous cell carcinoma of the cervix
     Dosage: AUC5, Q3W
     Route: 041
     Dates: start: 20230515, end: 202310

REACTIONS (1)
  - Acute kidney injury [Recovering/Resolving]

NARRATIVE: CASE EVENT DATE: 20230724
